FAERS Safety Report 5005653-5 (Version None)
Quarter: 2006Q2

REPORT INFORMATION
  Report Type: 
  Country: None (occurrence: None)
  Receive Date: 20060515
  Receipt Date: 20060502
  Transmission Date: 20061013
  Serious: Yes (Hospitalization)
  Sender: FDA-Public Use
  Company Number: 2006057959

PATIENT
  Age: 61 Year
  Sex: Female

DRUGS (3)
  1. SUTENT [Suspect]
     Indication: RENAL CANCER METASTATIC
     Dosage: 50 MG (50 MG DAILY INTERVAL: 4 WKS ON, 2 WKS OFF), ORAL ; 37.5 MG (37.5 MG DAILY INTERVAL: 4 WKS ON,
     Route: 048
     Dates: start: 20051011, end: 20051220
  2. SUTENT [Suspect]
     Indication: RENAL CANCER METASTATIC
     Dosage: 50 MG (50 MG DAILY INTERVAL: 4 WKS ON, 2 WKS OFF), ORAL ; 37.5 MG (37.5 MG DAILY INTERVAL: 4 WKS ON,
     Route: 048
     Dates: start: 20060103, end: 20060313
  3. SUTENT [Suspect]
     Indication: RENAL CANCER METASTATIC
     Dosage: 50 MG (50 MG DAILY INTERVAL: 4 WKS ON, 2 WKS OFF), ORAL ; 37.5 MG (37.5 MG DAILY INTERVAL: 4 WKS ON,
     Route: 048
     Dates: start: 20060424

REACTIONS (1)
  - ANORECTAL DISORDER [None]
